FAERS Safety Report 17657598 (Version 1)
Quarter: 2020Q2

REPORT INFORMATION
  Report Type: Report from Study
  Country: None (occurrence: BR)
  Receive Date: 20200410
  Receipt Date: 20200410
  Transmission Date: 20200713
  Serious: Yes (Death, Hospitalization, Other)
  Sender: FDA-Public Use
  Company Number: BR-ABBVIE-20K-020-3358550-00

PATIENT
  Age: 78 Year
  Sex: Female
  Weight: 50 kg

DRUGS (1)
  1. HUMIRA [Suspect]
     Active Substance: ADALIMUMAB
     Indication: RHEUMATOID ARTHRITIS
     Route: 058
     Dates: end: 201910

REACTIONS (13)
  - Pneumonia [Unknown]
  - Hepatic failure [Unknown]
  - Death [Fatal]
  - Osteoarthritis [Unknown]
  - Arthritis [Unknown]
  - Renal failure [Unknown]
  - Spinal disorder [Unknown]
  - Lower limb fracture [Unknown]
  - Thoracic vertebral fracture [Unknown]
  - Functional gastrointestinal disorder [Unknown]
  - Body height decreased [Unknown]
  - Fall [Unknown]
  - Hospitalisation [Unknown]

NARRATIVE: CASE EVENT DATE: 201910
